FAERS Safety Report 6969135-3 (Version None)
Quarter: 2010Q3

REPORT INFORMATION
  Report Type: 
  Country: None (occurrence: None)
  Receive Date: 20100907
  Receipt Date: 20100826
  Transmission Date: 20110219
  Serious: Yes (Hospitalization)
  Sender: FDA-Public Use
  Company Number: GXKR2010US09718

PATIENT
  Age: 18 Month
  Sex: Female

DRUGS (3)
  1. PROPRANOLOL [Suspect]
     Indication: HAEMANGIOMA
     Dosage: 0.5 MG/KG/D, DIVIDED AND GIVEN TWICE DAILY
     Route: 065
  2. PROPRANOLOL [Suspect]
     Dosage: 1 MG/KG/DAY
     Route: 065
  3. PROPRANOLOL [Suspect]
     Dosage: 1.25 MG/ KG/D, DIVIDED AND GIVEN TWICE DAILY
     Route: 065

REACTIONS (5)
  - COLD SWEAT [None]
  - CONVULSION [None]
  - FEELING COLD [None]
  - HYPOGLYCAEMIA [None]
  - UNRESPONSIVE TO STIMULI [None]
